FAERS Safety Report 11589622 (Version 1)
Quarter: 2015Q4

REPORT INFORMATION
  Report Type: Spontaneous
  Country: US (occurrence: US)
  Receive Date: 20151002
  Receipt Date: 20151002
  Transmission Date: 20160304
  Serious: Yes (Other)
  Sender: FDA-Public Use
  Company Number: US-JNJFOC-20150906046

PATIENT
  Sex: Female
  Weight: 43.09 kg

DRUGS (2)
  1. TOPAMAX [Suspect]
     Active Substance: TOPIRAMATE
     Indication: ANXIETY
     Route: 048
  2. JUNEL [Concomitant]
     Active Substance: ETHINYL ESTRADIOL\NORETHINDRONE ACETATE
     Indication: CONTRACEPTION
     Route: 065

REACTIONS (4)
  - Suicidal ideation [Unknown]
  - Depression [Unknown]
  - Product use issue [Unknown]
  - Therapeutic response unexpected [Unknown]
